FAERS Safety Report 13689808 (Version 2)
Quarter: 2017Q3

REPORT INFORMATION
  Report Type: Spontaneous
  Country: AU (occurrence: AU)
  Receive Date: 20170626
  Receipt Date: 20170714
  Transmission Date: 20171127
  Serious: Yes (Hospitalization, Other)
  Sender: FDA-Public Use
  Company Number: AU-PFIZER INC-2017273450

PATIENT
  Age: 40 Year
  Sex: Female
  Weight: 80 kg

DRUGS (4)
  1. MIRTAZAPINE. [Concomitant]
     Active Substance: MIRTAZAPINE
     Dosage: 1 TABLET, EACH NIGHT
  2. CYCLOSPORINE. [Concomitant]
     Active Substance: CYCLOSPORINE
     Indication: RHEUMATOID ARTHRITIS
     Dosage: 100 MG, 2X/DAY
     Route: 048
     Dates: start: 2013
  3. XELJANZ [Suspect]
     Active Substance: TOFACITINIB CITRATE
     Indication: RHEUMATOID ARTHRITIS
     Dosage: 15 MG, UNK
     Route: 048
     Dates: start: 20160531
  4. ZOSTAVAX [Suspect]
     Active Substance: VARICELLA-ZOSTER VIRUS STRAIN OKA/MERCK LIVE ANTIGEN

REACTIONS (7)
  - Contraindicated product administered [Recovered/Resolved]
  - Varicella zoster virus infection [Unknown]
  - Herpes zoster [Recovered/Resolved]
  - Cough [Unknown]
  - Blister [Unknown]
  - Seizure [Recovered/Resolved]
  - Immunosuppression [Unknown]

NARRATIVE: CASE EVENT DATE: 20170530
